FAERS Safety Report 11422111 (Version 1)
Quarter: 2015Q3

REPORT INFORMATION
  Report Type: Report from Study
  Country: GB (occurrence: GB)
  Receive Date: 20150827
  Receipt Date: 20150827
  Transmission Date: 20151125
  Serious: Yes (Hospitalization)
  Sender: FDA-Public Use
  Company Number: GB-UNITED THERAPEUTICS-LRX-000209

PATIENT
  Age: 58 Year
  Sex: Male
  Weight: 88 kg

DRUGS (16)
  1. SLOW K [Concomitant]
     Active Substance: POTASSIUM CHLORIDE
     Indication: MINERAL SUPPLEMENTATION
     Dosage: 6 TABLETS
     Route: 048
     Dates: start: 20071112
  2. FERROUS GLUCONATE [Concomitant]
     Active Substance: FERROUS GLUCONATE
     Indication: IRON DEFICIENCY ANAEMIA
     Dosage: ALTERNATE DAYS
     Route: 048
     Dates: start: 20050815
  3. LANSOPRAZOLE. [Concomitant]
     Active Substance: LANSOPRAZOLE
     Route: 048
     Dates: start: 20080227
  4. LANSOPRAZOLE. [Concomitant]
     Active Substance: LANSOPRAZOLE
     Indication: DYSPEPSIA
     Route: 048
     Dates: start: 20010129, end: 20080226
  5. AMLODIPINE [Concomitant]
     Active Substance: AMLODIPINE BESYLATE
     Route: 048
     Dates: start: 20080303
  6. TREPROSTINIL SODIUM (INHALED) [Suspect]
     Active Substance: TREPROSTINIL SODIUM
     Indication: PULMONARY ARTERIAL HYPERTENSION
     Dates: start: 20070522, end: 20070821
  7. TREPROSTINIL SODIUM (INHALED) [Suspect]
     Active Substance: TREPROSTINIL SODIUM
     Dates: start: 20070821
  8. DIGOXIN. [Concomitant]
     Active Substance: DIGOXIN
     Indication: PULMONARY HYPERTENSION
     Route: 048
     Dates: start: 20050617
  9. COCODAMOL [Concomitant]
     Active Substance: ACETAMINOPHEN\CODEINE PHOSPHATE
     Indication: ANALGESIC THERAPY
     Dosage: 2 TABLETS AS REQUIRED 30/500 MG
     Route: 048
     Dates: start: 2008
  10. GLICAZIDE MR [Concomitant]
     Indication: DIABETES MELLITUS
     Route: 048
     Dates: start: 1990
  11. SERETIDE [Concomitant]
     Active Substance: FLUTICASONE FUROATE\SALMETEROL XINAFOATE
     Indication: ASTHMA
     Dosage: 4 BREATHS
     Dates: start: 20031215
  12. SILDENAFIL. [Concomitant]
     Active Substance: SILDENAFIL
     Indication: PULMONARY HYPERTENSION
     Route: 048
     Dates: start: 20050916
  13. OXYGEN. [Concomitant]
     Active Substance: OXYGEN
     Indication: PULMONARY HYPERTENSION
     Dates: start: 20060801
  14. WARFARIN [Concomitant]
     Active Substance: WARFARIN
     Indication: PULMONARY HYPERTENSION
     Dosage: AS PER INR
     Route: 048
     Dates: start: 20001016
  15. BUMETANIDE. [Concomitant]
     Active Substance: BUMETANIDE
     Indication: PULMONARY HYPERTENSION
     Route: 048
     Dates: start: 20050617
  16. AMLODIPINE [Concomitant]
     Active Substance: AMLODIPINE BESYLATE
     Route: 048
     Dates: end: 20080227

REACTIONS (2)
  - Arthralgia [Recovered/Resolved]
  - Atrial flutter [Recovered/Resolved]

NARRATIVE: CASE EVENT DATE: 20080224
